FAERS Safety Report 8846583 (Version 1)
Quarter: 2012Q4

REPORT INFORMATION
  Report Type: 
  Country: CL (occurrence: CL)
  Receive Date: 20121017
  Receipt Date: 20121017
  Transmission Date: 20130627
  Serious: Yes (Other)
  Sender: FDA-Public Use
  Company Number: CL-BRISTOL-MYERS SQUIBB COMPANY-17028606

PATIENT

DRUGS (1)
  1. IXEMPRA [Suspect]

REACTIONS (1)
  - Macular oedema [Unknown]
